FAERS Safety Report 16357179 (Version 2)
Quarter: 2019Q3

REPORT INFORMATION
  Report Type: Spontaneous
  Country: US (occurrence: US)
  Receive Date: 20190527
  Receipt Date: 20190927
  Transmission Date: 20191004
  Serious: No
  Sender: FDA-Public Use
  Company Number: US-AMGEN-USASP2019081044

PATIENT
  Sex: Female

DRUGS (2)
  1. REPATHA [Suspect]
     Active Substance: EVOLOCUMAB
     Indication: BLOOD PRESSURE ABNORMAL
     Dosage: UNK
     Route: 065
  2. HUMIRA [Suspect]
     Active Substance: ADALIMUMAB
     Indication: CROHN^S DISEASE
     Dosage: UNK
     Route: 058

REACTIONS (12)
  - Frequent bowel movements [Unknown]
  - Alopecia [Recovering/Resolving]
  - Asthenia [Unknown]
  - Headache [Unknown]
  - Pain [Not Recovered/Not Resolved]
  - Onychoclasis [Unknown]
  - Skin disorder [Unknown]
  - Drug hypersensitivity [Unknown]
  - Fatigue [Not Recovered/Not Resolved]
  - Night sweats [Unknown]
  - Oral herpes [Not Recovered/Not Resolved]
  - Back pain [Not Recovered/Not Resolved]
